FAERS Safety Report 15849673 (Version 1)
Quarter: 2019Q1

REPORT INFORMATION
  Report Type: Spontaneous
  Country: US (occurrence: US)
  Receive Date: 20190121
  Receipt Date: 20190121
  Transmission Date: 20190417
  Serious: Yes (Other)
  Sender: FDA-Public Use
  Company Number: US-SUPERNUS PHARMACEUTICALS, INC.-2019SUP00005

PATIENT
  Age: 29 Year
  Sex: Female
  Weight: 67.12 kg

DRUGS (5)
  1. MAGNESIUM [Concomitant]
     Active Substance: MAGNESIUM
  2. TROKENDI XR [Suspect]
     Active Substance: TOPIRAMATE
     Dosage: 400 MG, 1X/DAY
     Route: 048
     Dates: start: 201308, end: 2017
  3. FOLIC ACID. [Concomitant]
     Active Substance: FOLIC ACID
  4. PRENATAL VITAMINS [Concomitant]
     Active Substance: VITAMINS
  5. TROKENDI XR [Suspect]
     Active Substance: TOPIRAMATE
     Indication: MIGRAINE PROPHYLAXIS
     Dosage: 400 MG, 1X/DAY
     Route: 048
     Dates: start: 2008, end: 2009

REACTIONS (7)
  - Pregnancy [Recovered/Resolved]
  - Suppressed lactation [Recovered/Resolved]
  - Premature delivery [Recovered/Resolved]
  - Weight decreased [Unknown]
  - Decreased appetite [Not Recovered/Not Resolved]
  - Drug ineffective [Recovered/Resolved]
  - Gestational diabetes [Recovered/Resolved]

NARRATIVE: CASE EVENT DATE: 2011
